FAERS Safety Report 7272044-6 (Version None)
Quarter: 2011Q1

REPORT INFORMATION
  Report Type: 
  Country: None (occurrence: None)
  Receive Date: 20110203
  Receipt Date: 20110125
  Transmission Date: 20110831
  Serious: Yes (Other)
  Sender: FDA-Public Use
  Company Number: ES-ASTRAZENECA-2011SE04792

PATIENT
  Sex: Male

DRUGS (3)
  1. SEGURIL [Suspect]
     Route: 042
     Dates: start: 20100501, end: 20101029
  2. DOPAMINE [Suspect]
     Route: 041
     Dates: start: 20101015, end: 20101029
  3. MERONEM [Suspect]
     Route: 042
     Dates: start: 20101008, end: 20101025

REACTIONS (1)
  - HYPOACUSIS [None]
